FAERS Safety Report 4536995-5 (Version None)
Quarter: 2004Q4

REPORT INFORMATION
  Report Type: 
  Country: None (occurrence: None)
  Receive Date: 20041220
  Receipt Date: 20041203
  Transmission Date: 20050328
  Serious: Yes (Hospitalization)
  Sender: FDA-Public Use
  Company Number: 9417

PATIENT
  Age: 72 Year
  Sex: Male

DRUGS (3)
  1. METHOTREXATE [Suspect]
     Indication: RHEUMATOID ARTHRITIS
     Dosage: 15 MG QD IM
     Route: 030
     Dates: start: 20031101, end: 20041020
  2. ETANERCEPT [Suspect]
     Indication: RHEUMATOID ARTHRITIS
     Dosage: 50 MG WEEKLY SC
     Route: 058
     Dates: start: 20040422, end: 20041020
  3. PREDNISONE [Concomitant]

REACTIONS (1)
  - LIP AND/OR ORAL CAVITY CANCER [None]
